FAERS Safety Report 17855637 (Version 1)
Quarter: 2020Q2

REPORT INFORMATION
  Report Type: Spontaneous
  Country: JP (occurrence: JP)
  Receive Date: 20200603
  Receipt Date: 20200603
  Transmission Date: 20200714
  Serious: Yes (Other)
  Sender: FDA-Public Use
  Company Number: JP-GUERBET-JP-20200066

PATIENT
  Age: 55 Year
  Sex: Female

DRUGS (14)
  1. LIPIODOL [Suspect]
     Active Substance: ETHIODIZED OIL
     Dosage: 5TH SESSION OF TACE
     Route: 013
  2. CISPLATIN. [Suspect]
     Active Substance: CISPLATIN
     Dosage: 4 SESSIONS OF TACE WERE PERFORMED DURING 4 MONTHS WITH ONE MONTH OF INTERVAL
     Route: 013
  3. LIPIODOL [Suspect]
     Active Substance: ETHIODIZED OIL
     Dosage: 4 SESSIONS OF TACE WERE PERFORMED DURING 4 MONTHS WITH ONE MONTH OF INTERVAL
     Route: 013
  4. CISPLATIN. [Suspect]
     Active Substance: CISPLATIN
     Indication: TRANSCATHETER ARTERIAL CHEMOEMBOLISATION
     Dosage: 4 SESSIONS OF TACE WERE PERFORMED DURING 4 MONTHS WITH ONE MONTH OF INTERVAL
     Route: 013
  5. LIPIODOL [Suspect]
     Active Substance: ETHIODIZED OIL
     Dosage: 4 SESSIONS OF TACE WERE PERFORMED DURING 4 MONTHS WITH ONE MONTH OF INTERVAL
     Route: 013
  6. CISPLATIN. [Suspect]
     Active Substance: CISPLATIN
     Dosage: 5TH SESSION OF TACE
     Route: 013
  7. CISPLATIN. [Suspect]
     Active Substance: CISPLATIN
     Dosage: 7TH SESSION OF TACE (30 MG GIVEN FROM THE RIGHT HEPATIC ARTERY AND 30 MG GIVEN FROM THE RIGHT LOWER
     Route: 013
  8. LIPIODOL [Suspect]
     Active Substance: ETHIODIZED OIL
     Dosage: 7TH SESSION OF TACE (3 ML GIVEN FROM THE RIGHT HEPATIC ARTERY AND 3 ML GIVEN FROM THE RIGHT LOWER PH
     Route: 013
  9. CISPLATIN. [Suspect]
     Active Substance: CISPLATIN
     Dosage: 4 SESSIONS OF TACE WERE PERFORMED DURING 4 MONTHS WITH ONE MONTH OF INTERVAL
     Route: 013
  10. CISPLATIN. [Suspect]
     Active Substance: CISPLATIN
     Dosage: 4 SESSIONS OF TACE WERE PERFORMED DURING 4 MONTHS WITH ONE MONTH OF INTERVAL
     Route: 013
  11. LIPIODOL [Suspect]
     Active Substance: ETHIODIZED OIL
     Indication: TRANSCATHETER ARTERIAL CHEMOEMBOLISATION
     Dosage: 4 SESSIONS OF TACE WERE PERFORMED DURING 4 MONTHS WITH ONE MONTH OF INTERVAL
     Route: 013
  12. LIPIODOL [Suspect]
     Active Substance: ETHIODIZED OIL
     Dosage: 4 SESSIONS OF TACE WERE PERFORMED DURING 4 MONTHS WITH ONE MONTH OF INTERVAL
     Route: 013
  13. CISPLATIN. [Suspect]
     Active Substance: CISPLATIN
     Dosage: 6TH SESSION OF TACE
     Route: 013
  14. LIPIODOL [Suspect]
     Active Substance: ETHIODIZED OIL
     Dosage: 6TH SESSION OF TACE
     Route: 013

REACTIONS (4)
  - Pyrexia [Unknown]
  - Product use in unapproved indication [Unknown]
  - Liver abscess [Unknown]
  - Platelet count decreased [Unknown]
